FAERS Safety Report 19353310 (Version 1)
Quarter: 2021Q2

REPORT INFORMATION
  Report Type: Spontaneous
  Country: CA (occurrence: CA)
  Receive Date: 20210601
  Receipt Date: 20210601
  Transmission Date: 20210717
  Serious: Yes (Other)
  Sender: FDA-Public Use
  Company Number: CA-JNJFOC-20210552507

PATIENT
  Age: 60 Year
  Sex: Female
  Weight: 68 kg

DRUGS (3)
  1. METHOTREXATE. [Concomitant]
     Active Substance: METHOTREXATE
     Route: 048
  2. PREDNISONE. [Concomitant]
     Active Substance: PREDNISONE
     Route: 065
  3. INFLIXIMAB, RECOMBINANT [Suspect]
     Active Substance: INFLIXIMAB
     Indication: COLITIS ULCERATIVE
     Route: 042

REACTIONS (6)
  - Off label use [Unknown]
  - Inappropriate schedule of product administration [Unknown]
  - Condition aggravated [Unknown]
  - Breast cancer [Unknown]
  - Arthralgia [Unknown]
  - Product use issue [Unknown]
